FAERS Safety Report 17296183 (Version 1)
Quarter: 2020Q1

REPORT INFORMATION
  Report Type: Report from Study
  Country: US (occurrence: US)
  Receive Date: 20200122
  Receipt Date: 20200122
  Transmission Date: 20200409
  Serious: Yes (Death)
  Sender: FDA-Public Use
  Company Number: US-ROCHE-2506867

PATIENT
  Sex: Male

DRUGS (1)
  1. OCREVUS [Suspect]
     Active Substance: OCRELIZUMAB
     Indication: PRIMARY PROGRESSIVE MULTIPLE SCLEROSIS
     Dosage: 14/NOV/2018, 05/JUN/2019
     Route: 042
     Dates: start: 20181031, end: 2019

REACTIONS (4)
  - Acute respiratory failure [Fatal]
  - Cardio-respiratory arrest [Fatal]
  - Multiple sclerosis [Fatal]
  - Sepsis [Fatal]
